FAERS Safety Report 12119154 (Version 1)
Quarter: 2016Q1

REPORT INFORMATION
  Report Type: Spontaneous
  Country: US (occurrence: None)
  Receive Date: 20160225
  Receipt Date: 20160225
  Transmission Date: 20160526
  Serious: Yes (Hospitalization)
  Sender: FDA-Public Use
  Company Number: None

PATIENT
  Age: 50 Year
  Sex: Female
  Weight: 74 kg

DRUGS (2)
  1. LITHIUM 150 MG [Suspect]
     Active Substance: LITHIUM
     Indication: DEPRESSION
     Dosage: 1 TABLET
     Route: 048
  2. LITHIUM 150 MG [Suspect]
     Active Substance: LITHIUM
     Indication: BIPOLAR DISORDER
     Dosage: 1 TABLET
     Route: 048

REACTIONS (2)
  - Antidepressant drug level above therapeutic [None]
  - Mental status changes [None]

NARRATIVE: CASE EVENT DATE: 20160213
